FAERS Safety Report 9769439 (Version 1)
Quarter: 2013Q4

REPORT INFORMATION
  Report Type: Spontaneous
  Country: US (occurrence: None)
  Receive Date: 20131217
  Receipt Date: 20131217
  Transmission Date: 20140711
  Serious: No
  Sender: FDA-Public Use
  Company Number: None

PATIENT
  Age: 75 Year
  Sex: Female
  Weight: 81.65 kg

DRUGS (7)
  1. PREDNISONE 5MG [Suspect]
     Indication: ARTHRITIS
     Dosage: 1 AND 1/2 PILL DAILY 1 MORNING 1/2 EVENING
     Route: 048
     Dates: start: 201307, end: 20131018
  2. LEVOTHYROXIN 125 MG [Concomitant]
  3. HYDROXYCHLOR 200 MG [Concomitant]
  4. BENAZEPRIL 40 MG AMLODIPINE 5 MG [Concomitant]
  5. PRAVASTATIN 80 MG [Concomitant]
  6. VIT D3 1000 IU [Concomitant]
  7. ADVIL 200 MG (6 DAILY) [Concomitant]

REACTIONS (3)
  - Oral discomfort [None]
  - Drug ineffective [None]
  - Fungal infection [None]
